FAERS Safety Report 24835962 (Version 1)
Quarter: 2025Q1

REPORT INFORMATION
  Report Type: Report from Study
  Country: CA (occurrence: CA)
  Receive Date: 20250113
  Receipt Date: 20250113
  Transmission Date: 20250409
  Serious: Yes (Death, Other)
  Sender: SANDOZ
  Company Number: CA-002147023-NVSC2023CA030968

PATIENT
  Age: 72 Year
  Sex: Male
  Weight: 108 kg

DRUGS (2)
  1. PIRFENIDONE [Suspect]
     Active Substance: PIRFENIDONE
     Indication: Idiopathic pulmonary fibrosis
     Route: 048
  2. PIRFENIDONE [Suspect]
     Active Substance: PIRFENIDONE
     Route: 065

REACTIONS (11)
  - Death [Fatal]
  - Bronchiectasis [Unknown]
  - Interstitial lung disease [Unknown]
  - Pulmonary arterial hypertension [Unknown]
  - Pulmonary artery dilatation [Unknown]
  - Pulmonary fibrosis [Unknown]
  - Pulmonary septal thickening [Unknown]
  - Pulmonary calcification [Unknown]
  - Hepatic lesion [Unknown]
  - Diverticulum intestinal [Unknown]
  - Respiratory tract infection [Unknown]

NARRATIVE: CASE EVENT DATE: 20231205
